FAERS Safety Report 8210406-0 (Version None)
Quarter: 2012Q1

REPORT INFORMATION
  Report Type: 
  Country: None (occurrence: None)
  Receive Date: 20120314
  Receipt Date: 20110624
  Transmission Date: 20120608
  Serious: No
  Sender: FDA-Public Use
  Company Number: US-ASTRAZENECA-2011SE38304

PATIENT
  Sex: Female

DRUGS (3)
  1. NORVASC [Suspect]
     Route: 065
  2. COUMADIN [Concomitant]
  3. TOPROL-XL [Suspect]
     Route: 048

REACTIONS (1)
  - BLOOD PRESSURE INADEQUATELY CONTROLLED [None]
